FAERS Safety Report 21611391 (Version 1)
Quarter: 2022Q4

REPORT INFORMATION
  Report Type: Spontaneous
  Country: FR (occurrence: FR)
  Receive Date: 20221117
  Receipt Date: 20221117
  Transmission Date: 20230113
  Serious: Yes (Death, Other)
  Sender: FDA-Public Use
  Company Number: None

PATIENT
  Age: 29 Year
  Sex: Female
  Weight: 90 kg

DRUGS (11)
  1. PROPRANOLOL HYDROCHLORIDE [Suspect]
     Active Substance: PROPRANOLOL HYDROCHLORIDE
     Indication: Abdominal pain
     Dosage: CHLORHYDRATE DE PROPRANOLOL , UNIT DOSE : 40 MG   , FREQUENCY TIME :   1 DAY , DURATION :  0 MIN
  2. OFLOXACIN [Suspect]
     Active Substance: OFLOXACIN
     Indication: Colitis
     Dosage: UNIT DOSE :  400 MG  , FREQUENCY TIME :  1 DAY  , DURATION :  15 DAYS , THERAPY END DATE : NASK
     Route: 065
     Dates: start: 20220119
  3. ONDANSETRON [Suspect]
     Active Substance: ONDANSETRON
     Indication: Nausea
     Dosage: UNIT DOSE :  4 MG  , FREQUENCY TIME :  3 TOTAL  , DURATION :  1 DAY
  4. PANTOPRAZOLE [Suspect]
     Active Substance: PANTOPRAZOLE
     Indication: Product used for unknown indication
     Dosage: UNIT DOSE :  40 MG  , FREQUENCY TIME :  1 DAY  , DURATION :  1 DAY
     Dates: start: 20220203, end: 20220204
  5. ACETAMINOPHEN [Suspect]
     Active Substance: ACETAMINOPHEN
     Indication: Abdominal pain
     Dosage: UNIT DOSE : 2 GRAM   , FREQUENCY TIME : 1 DAY  , DURATION :  2 DAY
     Route: 065
     Dates: start: 20220202, end: 20220204
  6. TRIMEBUTINE [Suspect]
     Active Substance: TRIMEBUTINE
     Indication: Abdominal pain
     Dosage: 200 MILLIGRAM DAILY; 02/02: 100MG IV AT 2:40 A.M. AND 9:50 A.M. ,
     Route: 042
  7. TRIMEBUTINE [Suspect]
     Active Substance: TRIMEBUTINE
     Dosage: 100 MILLIGRAM DAILY; 100MG IV AT 9:59 A.M.
     Route: 042
  8. METRONIDAZOLE [Suspect]
     Active Substance: METRONIDAZOLE
     Indication: Colitis
     Dosage: UNIT DOSE : 1000 MG   , FREQUENCY TIME : 1 DAY  , DURATION : 15 DAYS , THERAPY END DATE : NASK
     Dates: start: 20220119
  9. VANCOMYCIN [Suspect]
     Active Substance: VANCOMYCIN
     Indication: Clostridium difficile colitis
     Dosage: UNIT DOSE :   3 DF, FREQUENCY TIME : 1 TOTAL  , DURATION :  18.8 HOUR
  10. METOCLOPRAMIDE HYDROCHLORIDE [Concomitant]
     Active Substance: METOCLOPRAMIDE HYDROCHLORIDE
     Indication: Nausea
     Dosage: CHLORHYDRATE DE METOCLOPRAMIDE , UNIT DOSE : 10 MG   , FREQUENCY TIME : 1 DAY   , DURATION :  1 DAY
     Dates: start: 20220202, end: 20220202
  11. 1,3,5-TRIMETHOXYBENZENE [Concomitant]
     Active Substance: 1,3,5-TRIMETHOXYBENZENE
     Indication: Abdominal pain
     Dosage: PHLOROGLUCINOL (TRIMETHYL ETHER DU)  , UNIT DOSE : 120 MG  , FREQUENCY TIME : 1 DAY , DURATION :  1
     Dates: start: 20220202, end: 20220202

REACTIONS (2)
  - Cardio-respiratory arrest [Fatal]
  - Tachycardia [Recovered/Resolved]

NARRATIVE: CASE EVENT DATE: 20220204
